FAERS Safety Report 8914411 (Version 5)
Quarter: 2016Q2

REPORT INFORMATION
  Report Type: Spontaneous
  Country: US (occurrence: US)
  Receive Date: 20121119
  Receipt Date: 20160404
  Transmission Date: 20160815
  Serious: Yes (Other)
  Sender: FDA-Public Use
  Company Number: US-009507513-1211USA006856

PATIENT
  Sex: Male
  Weight: 99.77 kg

DRUGS (4)
  1. PROPECIA [Suspect]
     Active Substance: FINASTERIDE
     Indication: ALOPECIA AREATA
  2. PROPECIA [Suspect]
     Active Substance: FINASTERIDE
     Indication: ANDROGENETIC ALOPECIA
     Dosage: 1 MG, Q24H
     Route: 048
     Dates: start: 20020508
  3. WELLBUTRIN [Concomitant]
     Active Substance: BUPROPION HYDROCHLORIDE
     Indication: DEPRESSION
     Dosage: 150 MG, Q12H
     Route: 048
     Dates: start: 20020416, end: 20030701
  4. ZOLOFT [Concomitant]
     Active Substance: SERTRALINE HYDROCHLORIDE

REACTIONS (33)
  - Basal cell carcinoma [Unknown]
  - Carotid artery disease [Unknown]
  - Anxiety [Unknown]
  - Hypertension [Unknown]
  - Loss of libido [Unknown]
  - Seborrhoeic keratosis [Unknown]
  - Upper respiratory tract infection [Unknown]
  - Back pain [Unknown]
  - Intervertebral disc protrusion [Unknown]
  - Tonsillectomy [Unknown]
  - Erectile dysfunction [Unknown]
  - Rheumatoid arthritis [Unknown]
  - Coronary artery disease [Unknown]
  - Obsessive-compulsive disorder [Unknown]
  - Dependence [Unknown]
  - Depression [Unknown]
  - Sexual dysfunction [Unknown]
  - Hyperkeratosis [Unknown]
  - Type V hyperlipidaemia [Unknown]
  - Melanocytic naevus [Unknown]
  - Ligament sprain [Unknown]
  - Peyronie^s disease [Unknown]
  - Benign prostatic hyperplasia [Unknown]
  - Dyspnoea exertional [Unknown]
  - Weight increased [Unknown]
  - Irritability [Unknown]
  - Fatigue [Unknown]
  - Dyspepsia [Unknown]
  - Skin hyperplasia [Unknown]
  - Migraine [Unknown]
  - Sinusitis [Unknown]
  - Diarrhoea [Unknown]
  - Drug ineffective [Unknown]

NARRATIVE: CASE EVENT DATE: 2003
